FAERS Safety Report 5061355-0 (Version None)
Quarter: 2006Q3

REPORT INFORMATION
  Report Type: 
  Country: None (occurrence: None)
  Receive Date: 20060725
  Receipt Date: 20060626
  Transmission Date: 20061208
  Serious: Yes (Other)
  Sender: FDA-Public Use
  Company Number: FR-NOVOPROD-254595

PATIENT
  Age: 55 Year
  Sex: Male
  Weight: 109 kg

DRUGS (6)
  1. GLUCOPHAGE                         /00082701/ [Concomitant]
  2. NOVORAPID [Concomitant]
     Indication: DIABETES MELLITUS
  3. APROVEL [Concomitant]
  4. LERCANIDIPINE [Concomitant]
  5. GLUCAGEN [Suspect]
     Indication: GLUCOSE TOLERANCE TEST
  6. GLUCAGEN [Suspect]
     Dosage: 1 MG, UNK
     Route: 042
     Dates: start: 20060615, end: 20060615

REACTIONS (4)
  - HEADACHE [None]
  - HYPERHIDROSIS [None]
  - NAUSEA [None]
  - PHARMACEUTICAL PRODUCT COMPLAINT [None]
